FAERS Safety Report 7222366-X (Version None)
Quarter: 2011Q1

REPORT INFORMATION
  Report Type: 
  Country: None (occurrence: None)
  Receive Date: 20110103
  Receipt Date: 20101222
  Transmission Date: 20110831
  Serious: Yes (Death)
  Sender: FDA-Public Use
  Company Number: 2010SP066721

PATIENT
  Sex: Male

DRUGS (3)
  1. BORTEZOMIB [Suspect]
     Indication: MULTIPLE MYELOMA
  2. DEXAMETHASONE (DEXAMETHASONE) [Suspect]
     Indication: MULTIPLE MYELOMA
  3. CAELYX (DOXORUBICIN HYDROCHLORIDE) [Suspect]
     Indication: MULTIPLE MYELOMA

REACTIONS (1)
  - TOXICITY TO VARIOUS AGENTS [None]
